FAERS Safety Report 8282796-4 (Version None)
Quarter: 2012Q2

REPORT INFORMATION
  Report Type: 
  Country: None (occurrence: None)
  Receive Date: 20120413
  Receipt Date: 20120330
  Transmission Date: 20120825
  Serious: Yes (Death, Hospitalization)
  Sender: FDA-Public Use
  Company Number: BE-ALEXION-A201200449

PATIENT
  Sex: Female

DRUGS (9)
  1. DIFLUCAN [Concomitant]
     Dosage: 200 MG, UNK
  2. SOLIRIS [Suspect]
     Indication: PAROXYSMAL NOCTURNAL HAEMOGLOBINURIA
     Dosage: 600 MG, QW
     Route: 042
     Dates: start: 20100101
  3. SOLIRIS [Suspect]
     Dosage: 900 MG, Q2W
     Route: 042
     Dates: end: 20111201
  4. THYMOGLOBULIN [Concomitant]
     Indication: APLASTIC ANAEMIA
     Dosage: 500 ML, UNK
     Dates: start: 20120123
  5. ACETAMINOPHEN [Concomitant]
     Dosage: 1 G, UNK
  6. SOLU-MEDROL [Concomitant]
     Dosage: 40 MG, UNK
  7. ACYCLOVIR [Concomitant]
     Dosage: 800 MG, UNK
  8. LEVOFLOXACIN [Concomitant]
     Dosage: 500 MG, UNK
  9. ZYRTEC [Concomitant]
     Dosage: 10 MG, UNK

REACTIONS (4)
  - SEPSIS [None]
  - CEREBRAL ASPERGILLOSIS [None]
  - APLASTIC ANAEMIA [None]
  - BRONCHOPULMONARY ASPERGILLOSIS [None]
